FAERS Safety Report 8084897-2 (Version None)
Quarter: 2012Q1

REPORT INFORMATION
  Report Type: 
  Country: None (occurrence: None)
  Receive Date: 20120128
  Receipt Date: 20110316
  Transmission Date: 20120608
  Serious: No
  Sender: FDA-Public Use
  Company Number: US-ABBOTT-11P-163-0712996-00

PATIENT
  Sex: Female

DRUGS (7)
  1. TRIAMTERENE AND HYDROCHLOROTHIAZIDE [Concomitant]
     Indication: FLUID RETENTION
     Dosage: 37.5/25 MILLIGRAM
  2. HUMIRA [Suspect]
     Indication: RHEUMATOID ARTHRITIS
     Dates: start: 20080501
  3. CLARINEX [Concomitant]
     Indication: HYPERSENSITIVITY
  4. ZANTAC [Concomitant]
     Indication: PRODUCT USED FOR UNKNOWN INDICATION
  5. DORYX [Concomitant]
     Indication: PRODUCT USED FOR UNKNOWN INDICATION
  6. METHOTREXATE [Concomitant]
     Indication: RHEUMATOID ARTHRITIS
  7. IMITREX [Concomitant]
     Indication: MIGRAINE

REACTIONS (3)
  - HYPOAESTHESIA [None]
  - EYE INFECTION [None]
  - PARAESTHESIA [None]
